FAERS Safety Report 6080225-2 (Version None)
Quarter: 2009Q1

REPORT INFORMATION
  Report Type: 
  Country: None (occurrence: None)
  Receive Date: 20090217
  Receipt Date: 20090211
  Transmission Date: 20090719
  Serious: Yes (Other)
  Sender: FDA-Public Use
  Company Number: US-ELI_LILLY_AND_COMPANY-US200902002411

PATIENT
  Sex: Female

DRUGS (11)
  1. HUMULIN 70/30 [Suspect]
  2. HUMULIN R [Suspect]
  3. PREMARIN [Concomitant]
  4. GLUCOPHAGE [Concomitant]
  5. AMLODIPINE [Concomitant]
  6. FUROSEMIDE [Concomitant]
  7. ALLOPURINOL [Concomitant]
  8. KLOR-CON [Concomitant]
  9. TRICOR [Concomitant]
  10. RANITIDINE [Concomitant]
  11. LEVOTHYROXINE SODIUM [Concomitant]

REACTIONS (7)
  - ARTHRITIS [None]
  - CATARACT [None]
  - CEREBROVASCULAR ACCIDENT [None]
  - DYSSTASIA [None]
  - HYPERMETROPIA [None]
  - MACULAR DEGENERATION [None]
  - VISION BLURRED [None]
